FAERS Safety Report 5398514-3 (Version None)
Quarter: 2007Q3

REPORT INFORMATION
  Report Type: 
  Country: None (occurrence: None)
  Receive Date: 20070726
  Receipt Date: 20061106
  Transmission Date: 20080115
  Serious: No
  Sender: FDA-Public Use
  Company Number: US-AMGEN-KDL199958

PATIENT
  Sex: Male
  Weight: 91.7 kg

DRUGS (5)
  1. PROCRIT [Suspect]
     Indication: RENAL FAILURE CHRONIC
     Route: 058
     Dates: start: 20061018
  2. ENALAPRIL MALEATE [Concomitant]
  3. FUROSEMIDE [Concomitant]
  4. CARDURA [Concomitant]
  5. ASPIRIN [Concomitant]

REACTIONS (9)
  - ABDOMINAL DISTENSION [None]
  - ABDOMINAL PAIN [None]
  - DYSPHONIA [None]
  - FATIGUE [None]
  - HEADACHE [None]
  - PHARYNGOLARYNGEAL PAIN [None]
  - PYREXIA [None]
  - RENAL CYST INFECTION [None]
  - UPPER RESPIRATORY TRACT CONGESTION [None]
